FAERS Safety Report 5198858-4 (Version None)
Quarter: 2007Q1

REPORT INFORMATION
  Report Type: 
  Country: None (occurrence: None)
  Receive Date: 20070104
  Receipt Date: 20061227
  Transmission Date: 20070707
  Serious: Yes (Life-Threatening, Other)
  Sender: FDA-Public Use
  Company Number: PL-BRISTOL-MYERS SQUIBB COMPANY-13608419

PATIENT
  Age: 64 Year
  Sex: Male
  Weight: 93 kg

DRUGS (8)
  1. CISPLATIN [Suspect]
     Indication: NON-SMALL CELL LUNG CANCER
     Route: 042
     Dates: start: 20061108, end: 20061108
  2. PF-3512676 [Suspect]
     Indication: NON-SMALL CELL LUNG CANCER
     Route: 058
     Dates: start: 20061115, end: 20061115
  3. GEMCITABINE [Suspect]
     Indication: NON-SMALL CELL LUNG CANCER
     Route: 042
     Dates: start: 20061115, end: 20061115
  4. DOXAZOSIN MESYLATE [Concomitant]
     Route: 048
     Dates: start: 20061011
  5. TIANEPTINE [Concomitant]
     Route: 048
     Dates: start: 20061031
  6. ACETAMINOPHEN [Concomitant]
     Route: 048
     Dates: start: 20061021
  7. ONDANSETRON [Concomitant]
     Route: 048
     Dates: start: 20061017
  8. AUGMENTIN '125' [Concomitant]
     Route: 048
     Dates: start: 20061127, end: 20061129

REACTIONS (2)
  - HEADACHE [None]
  - SUBDURAL HAEMORRHAGE [None]
